FAERS Safety Report 9891374 (Version 1)
Quarter: 2014Q1

REPORT INFORMATION
  Report Type: Spontaneous
  Country: US (occurrence: None)
  Receive Date: 20140211
  Receipt Date: 20140211
  Transmission Date: 20141002
  Serious: Yes (Hospitalization)
  Sender: FDA-Public Use
  Company Number: None

PATIENT
  Age: 60 Year
  Sex: Male
  Weight: 82.1 kg

DRUGS (1)
  1. CLONIDINE [Suspect]
     Indication: HYPERTENSION
     Route: 048
     Dates: start: 20131023, end: 20131025

REACTIONS (5)
  - Palpitations [None]
  - Dyspnoea [None]
  - Chest discomfort [None]
  - Hypotension [None]
  - Tachycardia [None]
